FAERS Safety Report 16245868 (Version 1)
Quarter: 2019Q2

REPORT INFORMATION
  Report Type: Spontaneous
  Country: CH (occurrence: CH)
  Receive Date: 20190426
  Receipt Date: 20190426
  Transmission Date: 20190711
  Serious: Yes (Other)
  Sender: FDA-Public Use
  Company Number: CH-009507513-1904CHE011247

PATIENT
  Age: 68 Year
  Sex: Male

DRUGS (18)
  1. TARGIN [Concomitant]
     Active Substance: NALOXONE HYDROCHLORIDE\OXYCODONE HYDROCHLORIDE
     Dosage: UNK
     Dates: end: 20190405
  2. NEXIUM [Concomitant]
     Active Substance: ESOMEPRAZOLE MAGNESIUM
     Dosage: UNK
  3. SEVREDOL [Suspect]
     Active Substance: MORPHINE
     Dosage: 20 MILLIGRAM, AS NECESSARY
     Route: 048
     Dates: start: 20190407, end: 20190412
  4. DEXAMETHASONE. [Suspect]
     Active Substance: DEXAMETHASONE
     Dosage: 4 MILLIGRAM, QD
     Dates: end: 20190412
  5. LAXOBERON [Concomitant]
     Active Substance: SODIUM PICOSULFATE
     Dosage: UNK
  6. MST CONTINUS [Suspect]
     Active Substance: MORPHINE SULFATE
     Dosage: 130 MILLIGRAM, BID
     Route: 048
     Dates: start: 20190410, end: 20190412
  7. GABAPENTIN. [Suspect]
     Active Substance: GABAPENTIN
     Dosage: 300 MILLIGRAM, QD
     Dates: start: 20190304, end: 201903
  8. CREON [Concomitant]
     Active Substance: PANCRELIPASE AMYLASE\PANCRELIPASE LIPASE\PANCRELIPASE PROTEASE
     Dosage: UNK
  9. SEVREDOL [Suspect]
     Active Substance: MORPHINE
     Dosage: 40 MILLIGRAM, 6 TIMES PER DAY
     Route: 048
     Dates: start: 20190407, end: 20190412
  10. OXYNORM [Concomitant]
     Active Substance: OXYCODONE HYDROCHLORIDE
     Dosage: UNK, AS NECESSARY
     Dates: end: 20190405
  11. CITALOPRAM [Suspect]
     Active Substance: CITALOPRAM HYDROBROMIDE
     Dosage: 20 MILLIGRAM, QD
     Dates: end: 20190412
  12. MORPHINE [Concomitant]
     Active Substance: MORPHINE
     Dosage: 10 MILLIGRAM
     Route: 058
     Dates: start: 20190405, end: 20190407
  13. JANUMET [Suspect]
     Active Substance: METFORMIN HYDROCHLORIDE\SITAGLIPTIN PHOSPHATE
     Dosage: 1 DOSAGE FORM, BID
  14. MORPHINE [Concomitant]
     Active Substance: MORPHINE
     Dosage: MAX 6X/D ; AS NECESSARY
     Route: 058
     Dates: start: 20190405, end: 20190407
  15. DIAMICRON [Concomitant]
     Active Substance: GLICLAZIDE
     Dosage: UNK
  16. GABAPENTIN. [Suspect]
     Active Substance: GABAPENTIN
     Dosage: 900 MILLIGRAM, TID
     Dates: start: 201903, end: 20190412
  17. MORPHINE [Concomitant]
     Active Substance: MORPHINE
     Dosage: UNK
     Dates: start: 20190412
  18. PURSANA [Concomitant]
     Active Substance: FIG FRUIT OIL\SORBITOL
     Dosage: UNK

REACTIONS (1)
  - Confusional state [Recovered/Resolved]

NARRATIVE: CASE EVENT DATE: 20190411
